FAERS Safety Report 7008016-6 (Version None)
Quarter: 2010Q3

REPORT INFORMATION
  Report Type: 
  Country: None (occurrence: None)
  Receive Date: 20100922
  Receipt Date: 20100913
  Transmission Date: 20110219
  Serious: Yes (Life-Threatening, Hospitalization)
  Sender: FDA-Public Use
  Company Number: PL-BAXTER-2010BH022519

PATIENT
  Age: 3 Year
  Sex: Female
  Weight: 15 kg

DRUGS (4)
  1. CYCLOPHOSPHAMIDE [Suspect]
     Indication: LYMPHOCYTIC LEUKAEMIA
     Route: 042
     Dates: start: 20100701, end: 20100701
  2. MESNA [Suspect]
     Indication: LYMPHOCYTIC LEUKAEMIA
     Route: 042
     Dates: start: 20100701, end: 20100701
  3. MERCAPTOPURINE [Suspect]
     Indication: LYMPHOCYTIC LEUKAEMIA
     Route: 048
     Dates: start: 20100701, end: 20100728
  4. ZOFRAN [Concomitant]
     Indication: LYMPHOCYTIC LEUKAEMIA
     Route: 048
     Dates: start: 20100701, end: 20100701

REACTIONS (6)
  - ANXIETY [None]
  - BACK PAIN [None]
  - FACE OEDEMA [None]
  - FLUID RETENTION [None]
  - LARYNGOTRACHEAL OEDEMA [None]
  - VOMITING [None]
